FAERS Safety Report 8204995-X (Version None)
Quarter: 2012Q1

REPORT INFORMATION
  Report Type: 
  Country: None (occurrence: None)
  Receive Date: 20120313
  Receipt Date: 20120308
  Transmission Date: 20120608
  Serious: Yes (Death, Hospitalization)
  Sender: FDA-Public Use
  Company Number: GB-ABBOTT-11P-167-0729503-00

PATIENT
  Sex: Female
  Weight: 60 kg

DRUGS (3)
  1. HUMIRA [Suspect]
     Indication: RHEUMATOID ARTHRITIS
     Route: 058
     Dates: start: 20061029
  2. SULPHASALZINE [Concomitant]
     Indication: PRODUCT USED FOR UNKNOWN INDICATION
     Dates: end: 20061016
  3. METHOTREXATE [Concomitant]
     Indication: PRODUCT USED FOR UNKNOWN INDICATION
     Dates: start: 20061029

REACTIONS (6)
  - INTESTINAL STRANGULATION [None]
  - HIATUS HERNIA, OBSTRUCTIVE [None]
  - INTESTINAL GANGRENE [None]
  - POST PROCEDURAL INFECTION [None]
  - SEPSIS [None]
  - VOLVULUS [None]
